FAERS Safety Report 12295532 (Version 1)
Quarter: 2016Q2

REPORT INFORMATION
  Report Type: Spontaneous
  Country: US (occurrence: US)
  Receive Date: 20160422
  Receipt Date: 20160422
  Transmission Date: 20160815
  Serious: Yes (Other)
  Sender: FDA-Public Use
  Company Number: US-PURDUE PHARMA-USA-2015-0128119

PATIENT
  Sex: Male

DRUGS (2)
  1. XANAX [Suspect]
     Active Substance: ALPRAZOLAM
     Indication: DRUG ABUSE
     Route: 045
  2. OXYCODONE HCL CR TABLETS (SIMILAR TO NDA 22-272) [Suspect]
     Active Substance: OXYCODONE HYDROCHLORIDE
     Indication: DRUG ABUSE
     Dosage: 30 DF, UNK
     Route: 042

REACTIONS (5)
  - Drug abuse [Unknown]
  - Amnesia [Unknown]
  - Impaired reasoning [Unknown]
  - Feeling abnormal [Unknown]
  - Euphoric mood [Unknown]

NARRATIVE: CASE EVENT DATE: 20150918
